FAERS Safety Report 21530038 (Version 2)
Quarter: 2022Q4

REPORT INFORMATION
  Report Type: Spontaneous
  Country: SK (occurrence: SK)
  Receive Date: 20221031
  Receipt Date: 20221214
  Transmission Date: 20230113
  Serious: Yes (Other)
  Sender: FDA-Public Use
  Company Number: SK-TAKEDA-2022TUS079470

PATIENT
  Sex: Male

DRUGS (4)
  1. TEDUGLUTIDE [Suspect]
     Active Substance: TEDUGLUTIDE
     Indication: Product used for unknown indication
     Dosage: UNK
     Route: 065
     Dates: start: 202207, end: 20220831
  2. TEDUGLUTIDE [Suspect]
     Active Substance: TEDUGLUTIDE
     Indication: Product used for unknown indication
     Dosage: UNK
     Route: 065
     Dates: start: 202207, end: 20220831
  3. TEDUGLUTIDE [Suspect]
     Active Substance: TEDUGLUTIDE
     Indication: Product used for unknown indication
     Dosage: UNK
     Route: 065
     Dates: start: 202207, end: 20220831
  4. TEDUGLUTIDE [Suspect]
     Active Substance: TEDUGLUTIDE
     Indication: Product used for unknown indication
     Dosage: UNK
     Route: 065
     Dates: start: 202207, end: 20220831

REACTIONS (11)
  - Pneumonia klebsiella [Recovering/Resolving]
  - Thrombocytopenia [Unknown]
  - Bacterial infection [Unknown]
  - Pyrexia [Unknown]
  - Hypoalbuminaemia [Unknown]
  - Anaemia [Unknown]
  - Inflammation [Recovering/Resolving]
  - Platelet count decreased [Unknown]
  - Staphylococcal infection [Unknown]
  - Klebsiella infection [Unknown]
  - Post procedural complication [Unknown]

NARRATIVE: CASE EVENT DATE: 20220802
